FAERS Safety Report 5060767-9 (Version None)
Quarter: 2006Q3

REPORT INFORMATION
  Report Type: 
  Country: None (occurrence: None)
  Receive Date: 20060719
  Receipt Date: 20060719
  Transmission Date: 20061208
  Serious: Yes (Other)
  Sender: FDA-Public Use
  Company Number: None

PATIENT
  Sex: Male

DRUGS (12)
  1. ROSIGLITAZONE [Suspect]
     Indication: DIABETES MELLITUS
     Dosage: 4 MG  BID  PO
     Route: 048
     Dates: start: 20050104, end: 20060401
  2. ASPIRIN [Concomitant]
  3. BRIMONIDINE TARTRATE [Concomitant]
  4. FENOFIBRATE [Concomitant]
  5. FISH OIL [Concomitant]
  6. GABAPENTIN [Concomitant]
  7. HYDROCHLOROTHIAZIDE [Concomitant]
  8. METFORMIN [Concomitant]
  9. INSULIN [Concomitant]
  10. LISINOPRIL [Concomitant]
  11. SOTALOL HCL [Concomitant]
  12. WARFARIN SODIUM [Concomitant]

REACTIONS (1)
  - MACULAR OEDEMA [None]
